FAERS Safety Report 5848122-2 (Version None)
Quarter: 2008Q3

REPORT INFORMATION
  Report Type: 
  Country: None (occurrence: None)
  Receive Date: 20080814
  Receipt Date: 20080814
  Transmission Date: 20090109
  Serious: Yes (Other)
  Sender: FDA-Public Use
  Company Number: None

PATIENT
  Sex: Male

DRUGS (9)
  1. REVLIMID [Suspect]
     Indication: NON-HODGKIN'S LYMPHOMA
     Dosage: 25MG DAILY 21D/28D ORAL
     Route: 048
  2. ASPIRIN [Concomitant]
  3. ISORDIL [Concomitant]
  4. NITROGLYCERIN [Concomitant]
  5. ATENOLOL [Concomitant]
  6. LISINOPRIL [Concomitant]
  7. FAMOTADINE [Concomitant]
  8. FINASTERIDE [Concomitant]
  9. TEMAZEPAM [Concomitant]

REACTIONS (5)
  - CONSTIPATION [None]
  - DIARRHOEA [None]
  - DISEASE PROGRESSION [None]
  - FATIGUE [None]
  - NEUTROPENIA [None]
